FAERS Safety Report 15833965 (Version 1)
Quarter: 2019Q1

REPORT INFORMATION
  Report Type: Spontaneous
  Country: CN (occurrence: CN)
  Receive Date: 20190116
  Receipt Date: 20190116
  Transmission Date: 20190417
  Serious: Yes (Death)
  Sender: FDA-Public Use
  Company Number: CN-HQ SPECIALTY-CN-2019INT000004

PATIENT

DRUGS (3)
  1. ETOPOSIDE. [Suspect]
     Active Substance: ETOPOSIDE
     Indication: SMALL CELL LUNG CANCER RECURRENT
     Dosage: 60 MG/M2, ON DAYS 1-3
     Route: 042
  2. IRINOTECAN [Suspect]
     Active Substance: IRINOTECAN
     Indication: SMALL CELL LUNG CANCER RECURRENT
     Dosage: 90 MG/M2, ON DAY 8
     Route: 042
  3. CISPLATIN. [Suspect]
     Active Substance: CISPLATIN
     Indication: SMALL CELL LUNG CANCER RECURRENT
     Dosage: 25 MG/M2, ON DAYS 1 AND 8
     Route: 042

REACTIONS (2)
  - Lung infection [Fatal]
  - Febrile neutropenia [Fatal]
